FAERS Safety Report 4862174-8 (Version None)
Quarter: 2005Q4

REPORT INFORMATION
  Report Type: 
  Country: None (occurrence: None)
  Receive Date: 20051130
  Receipt Date: 20050722
  Transmission Date: 20060501
  Serious: Yes (Other)
  Sender: FDA-Public Use
  Company Number: 2005108393

PATIENT
  Age: 61 Year
  Sex: Male
  Weight: 124.7392 kg

DRUGS (3)
  1. CLINDAMYCIN PHOSPHATE [Suspect]
     Indication: LOCALISED INFECTION
     Dosage: INTRAVENOUS
     Route: 042
     Dates: start: 20050709, end: 20050710
  2. CLINDAMYCIN HYDROCHLORIDE [Suspect]
     Indication: LOCALISED INFECTION
     Dosage: 2700 MG (300 MG,3 IN 1 D),ORAL ; 900 MG (300 MG,3 IN 1 D),ORAL
     Route: 048
     Dates: end: 20050701
  3. CLINDAMYCIN HYDROCHLORIDE [Suspect]
     Indication: LOCALISED INFECTION
     Dosage: 2700 MG (300 MG,3 IN 1 D),ORAL ; 900 MG (300 MG,3 IN 1 D),ORAL
     Route: 048
     Dates: start: 20050710

REACTIONS (4)
  - DIZZINESS [None]
  - DRUG INEFFECTIVE [None]
  - DRUG PRESCRIBING ERROR [None]
  - NAUSEA [None]
